FAERS Safety Report 10057543 (Version 2)
Quarter: 2014Q2

REPORT INFORMATION
  Report Type: Report from Study
  Country: FR (occurrence: FR)
  Receive Date: 20140404
  Receipt Date: 20140404
  Transmission Date: 20141212
  Serious: Yes (Hospitalization)
  Sender: FDA-Public Use
  Company Number: FR-ROCHE-1289934

PATIENT
  Age: 56 Year
  Sex: Male

DRUGS (6)
  1. RITUXIMAB [Suspect]
     Indication: CHRONIC LYMPHOCYTIC LEUKAEMIA
     Route: 041
     Dates: start: 20120916
  2. RITUXIMAB [Suspect]
     Dosage: BETWEEN 17/SEP/12 AND 01/OCT/12 (6500 MG TOTAL)
     Route: 041
  3. RITUXIMAB [Suspect]
     Route: 041
     Dates: start: 20121008, end: 20130227
  4. FLUDARABINE [Suspect]
     Indication: CHRONIC LYMPHOCYTIC LEUKAEMIA
     Dosage: D2 TO D4 /CYCLE, 40 MG/M2 /CYCLE
     Route: 048
     Dates: start: 20121008, end: 20130227
  5. CYCLOPHOSPHAMIDE [Suspect]
     Indication: CHRONIC LYMPHOCYTIC LEUKAEMIA
     Dosage: D2 TO D4 /CYCLE, 250 MG/M2 /CYCLE
     Route: 048
     Dates: start: 20121008, end: 20130227
  6. NORSET [Concomitant]
     Indication: DEPRESSION
     Route: 048

REACTIONS (2)
  - Cardiac failure [Recovered/Resolved with Sequelae]
  - Myocardial ischaemia [Recovered/Resolved with Sequelae]
